FAERS Safety Report 20947527 (Version 1)
Quarter: 2022Q2

REPORT INFORMATION
  Report Type: Spontaneous
  Country: US (occurrence: US)
  Receive Date: 20220610
  Receipt Date: 20220610
  Transmission Date: 20220721
  Serious: No
  Sender: FDA-Public Use
  Company Number: US-RIGEL PHARMACEUTICALS, INC.-2021FOS000887

PATIENT
  Age: 75 Year
  Sex: Female
  Weight: 94.966 kg

DRUGS (3)
  1. TAVALISSE [Suspect]
     Active Substance: FOSTAMATINIB
     Indication: Immune thrombocytopenia
     Dosage: 150 MG, QD, IN MORNING
     Route: 048
     Dates: start: 20211203
  2. TAVALISSE [Suspect]
     Active Substance: FOSTAMATINIB
     Dosage: 100 MG, QD, IN EVENING
     Route: 048
     Dates: start: 20211203
  3. TAVALISSE [Suspect]
     Active Substance: FOSTAMATINIB
     Dosage: UNK
     Route: 048
     Dates: start: 20201221, end: 20211202

REACTIONS (9)
  - Loss of consciousness [Unknown]
  - Fall [Recovered/Resolved]
  - Head injury [Unknown]
  - Haematoma [Unknown]
  - Platelet count [Unknown]
  - Balance disorder [Unknown]
  - Paraesthesia [Unknown]
  - Walking aid user [Unknown]
  - Dizziness [Unknown]

NARRATIVE: CASE EVENT DATE: 20211101
